FAERS Safety Report 23935416 (Version 1)
Quarter: 2024Q2

REPORT INFORMATION
  Report Type: Spontaneous
  Country: US (occurrence: US)
  Receive Date: 20240604
  Receipt Date: 20240604
  Transmission Date: 20240715
  Serious: No
  Sender: FDA-Public Use
  Company Number: US-STERISCIENCE B.V.-2024-ST-000053

PATIENT
  Age: 25 Year
  Sex: Female

DRUGS (4)
  1. METOPROLOL [Suspect]
     Active Substance: METOPROLOL
     Indication: Tachycardia
     Dosage: UNK
     Route: 065
  2. DEXAMETHASONE [Suspect]
     Active Substance: DEXAMETHASONE
     Indication: Dexamethasone suppression test
     Dosage: UNK
     Route: 065
  3. DOXAZOSIN [Suspect]
     Active Substance: DOXAZOSIN MESYLATE
     Indication: Hypertension
     Dosage: 2 MILLIGRAM, QD
     Route: 065
  4. DOXAZOSIN [Suspect]
     Active Substance: DOXAZOSIN MESYLATE
     Dosage: 2 MILLIGRAM, BID
     Route: 065

REACTIONS (2)
  - Maternal exposure during pregnancy [Unknown]
  - Off label use [Unknown]
